FAERS Safety Report 6147519-3 (Version None)
Quarter: 2009Q2

REPORT INFORMATION
  Report Type: 
  Country: None (occurrence: None)
  Receive Date: 20090406
  Receipt Date: 20090318
  Transmission Date: 20091009
  Serious: No
  Sender: FDA-Public Use
  Company Number: 2009-193515-NL

PATIENT
  Age: 56 Year
  Sex: Female

DRUGS (4)
  1. DEXAMETHASONE 4MG TAB [Suspect]
     Indication: MULTIPLE MYELOMA
     Dosage: 20 MG
     Dates: start: 20080411, end: 20080704
  2. DEXAMETHASONE 4MG TAB [Suspect]
     Indication: MULTIPLE MYELOMA
     Dosage: 20 MG
     Dates: start: 20081219, end: 20090205
  3. BORTEZOMIB [Suspect]
     Indication: MULTIPLE MYELOMA
     Dosage: 2.6 MG
     Dates: start: 20080411, end: 20080704
  4. BORTEZOMIB [Suspect]
     Indication: MULTIPLE MYELOMA
     Dosage: 2.6 MG
     Dates: start: 20081219

REACTIONS (2)
  - CATARACT [None]
  - VISION BLURRED [None]
